FAERS Safety Report 19694682 (Version 1)
Quarter: 2021Q3

REPORT INFORMATION
  Report Type: Spontaneous
  Country: ES (occurrence: ES)
  Receive Date: 20210813
  Receipt Date: 20210813
  Transmission Date: 20211014
  Serious: Yes (Other)
  Sender: FDA-Public Use
  Company Number: ES-ORGANON-O2108ESP000810

PATIENT
  Age: 52 Year
  Sex: Female
  Weight: 80 kg

DRUGS (1)
  1. NASONEX [Suspect]
     Active Substance: MOMETASONE FUROATE
     Indication: NASAL TURBINATE HYPERTROPHY
     Dosage: 2 PUFFS AT NIGHT IN EACH NOSTRIL
     Route: 045
     Dates: start: 20210517, end: 20210709

REACTIONS (1)
  - Panic attack [Recovered/Resolved]

NARRATIVE: CASE EVENT DATE: 202105
